FAERS Safety Report 4682451-3 (Version None)
Quarter: 2005Q2

REPORT INFORMATION
  Report Type: 
  Country: None (occurrence: None)
  Receive Date: 20050531
  Receipt Date: 20050318
  Transmission Date: 20051028
  Serious: No
  Sender: FDA-Public Use
  Company Number: 2005BI005915

PATIENT
  Age: 36 Year
  Sex: Female

DRUGS (2)
  1. AMEVIVE [Suspect]
     Indication: PSORIASIS
     Dosage: 15 MG; QW; IM  15 MG; QW; IM
     Route: 030
     Dates: start: 20030410, end: 20030101
  2. AMEVIVE [Suspect]
     Indication: PSORIASIS
     Dosage: 15 MG; QW; IM  15 MG; QW; IM
     Route: 030
     Dates: start: 20050119

REACTIONS (2)
  - CD4 LYMPHOCYTES DECREASED [None]
  - MEDICATION ERROR [None]
